FAERS Safety Report 23593820 (Version 1)
Quarter: 2024Q1

REPORT INFORMATION
  Report Type: Spontaneous
  Country: US (occurrence: US)
  Receive Date: 20240304
  Receipt Date: 20240304
  Transmission Date: 20240409
  Serious: No
  Sender: FDA-Public Use
  Company Number: US-SANOFI-AVENTIS-2011SA082281

PATIENT
  Age: 78 Year
  Sex: Male

DRUGS (1)
  1. ALLEGRA ALLERGY [Suspect]
     Active Substance: FEXOFENADINE HYDROCHLORIDE
     Indication: Hypersensitivity
     Dosage: DOSE DESCRIPTION : 180 MG,QD AT NIGHT
     Route: 048
     Dates: start: 20111213

REACTIONS (2)
  - Pollakiuria [Not Recovered/Not Resolved]
  - Rhinorrhoea [Unknown]
